FAERS Safety Report 9824697 (Version 2)
Quarter: 2014Q1

REPORT INFORMATION
  Report Type: Report from Study
  Country: FR (occurrence: FR)
  Receive Date: 20140117
  Receipt Date: 20140124
  Transmission Date: 20141002
  Serious: Yes (Hospitalization)
  Sender: FDA-Public Use
  Company Number: FR-ROCHE-1333552

PATIENT
  Age: 69 Year
  Sex: Male
  Weight: 67 kg

DRUGS (5)
  1. BEVACIZUMAB [Suspect]
     Indication: COLORECTAL CANCER METASTATIC
     Dosage: LAST DOSE BEFORE SAE: 350 MG, DATE OF LAST DOSE BEFORE SAE 26/DEC/2013
     Route: 042
     Dates: start: 20131226
  2. OXALIPLATIN [Suspect]
     Indication: COLORECTAL CANCER METASTATIC
     Dosage: ON DAY 1 OVER 120 MINUTES, LAST DOSE BEFORE SAE: 159.04 MG, DATE OF LAST DOSE BEFORE SAE 26/DEC/2013
     Route: 042
     Dates: start: 20131226
  3. FLUOROURACIL [Suspect]
     Indication: COLORECTAL CANCER METASTATIC
     Dosage: ON DAY 1, LAST DOSE BEFORE SAE: 748.42 MG, DATE OF LAST DOSE BEFORE SAE 26/DEC/2013
     Route: 040
     Dates: start: 20131226
  4. FLUOROURACIL [Suspect]
     Dosage: 2400 MG/M2 OVER 46 HOURS, DATE AND LAST DOSE BEFORE SAE: 28/DEC/2013, 4490.54 MG
     Route: 041
  5. ACIDE FOLINIQUE [Suspect]
     Indication: COLORECTAL CANCER METASTATIC
     Dosage: LAST DOSE ADMINISTERED BEFORE SAE 374.21 MG, DATE OF LAST DOSE BEFORE SAE 28/DEC/2013
     Route: 042
     Dates: start: 20131226

REACTIONS (1)
  - Retinal detachment [Not Recovered/Not Resolved]
